FAERS Safety Report 22400715 (Version 1)
Quarter: 2023Q2

REPORT INFORMATION
  Report Type: Spontaneous
  Country: US (occurrence: None)
  Receive Date: 20230601
  Receipt Date: 20230601
  Transmission Date: 20230721
  Serious: Yes (Life-Threatening, Hospitalization, Other)
  Sender: FDA-Public Use
  Company Number: None

PATIENT
  Age: 60 Year
  Sex: Male

DRUGS (1)
  1. OTEZLA [Suspect]
     Active Substance: APREMILAST
     Dosage: 30MG BID ORAL
     Route: 048
     Dates: start: 202001

REACTIONS (2)
  - COVID-19 [None]
  - Arterial occlusive disease [None]

NARRATIVE: CASE EVENT DATE: 20221201
